FAERS Safety Report 5331311-3 (Version None)
Quarter: 2007Q2

REPORT INFORMATION
  Report Type: 
  Country: None (occurrence: None)
  Receive Date: 20070301
  Receipt Date: 20060607
  Transmission Date: 20071010
  Serious: Yes (Other)
  Sender: FDA-Public Use
  Company Number: 2609

PATIENT
  Age: 17 Year
  Sex: Male
  Weight: 61.2356 kg

DRUGS (2)
  1. ISOTRETINOIN [Suspect]
     Indication: ACNE
     Dosage: 40 MG QD PO
     Route: 048
     Dates: start: 20051230, end: 20060131
  2. ISOTRETINOIN [Suspect]
     Dosage: 80 MG QD PO
     Route: 048
     Dates: start: 20030201, end: 20060606

REACTIONS (1)
  - DRY EYE [None]
